FAERS Safety Report 5790237-1 (Version None)
Quarter: 2008Q2

REPORT INFORMATION
  Report Type: 
  Country: None (occurrence: None)
  Receive Date: 20080626
  Receipt Date: 20080303
  Transmission Date: 20081010
  Serious: No
  Sender: FDA-Public Use
  Company Number: A0706495A

PATIENT
  Age: 52 Year
  Sex: Female

DRUGS (2)
  1. ALLI [Suspect]
     Dates: end: 20080123
  2. SLEEPING PILLS [Concomitant]

REACTIONS (4)
  - BACK PAIN [None]
  - DRUG SCREEN POSITIVE [None]
  - PHARMACEUTICAL PRODUCT COMPLAINT [None]
  - RENAL PAIN [None]
